FAERS Safety Report 4687860-4 (Version None)
Quarter: 2005Q2

REPORT INFORMATION
  Report Type: 
  Country: None (occurrence: None)
  Receive Date: 20050609
  Receipt Date: 20050609
  Transmission Date: 20051028
  Serious: Yes (Other)
  Sender: FDA-Public Use
  Company Number: None

PATIENT
  Age: 55 Year
  Sex: Female
  Weight: 58.9676 kg

DRUGS (7)
  1. TYSABRI [Suspect]
     Indication: MULTIPLE SCLEROSIS
     Dosage: 1 DOSE ONLY
     Dates: start: 20050101
  2. NEURONTIN [Concomitant]
  3. ZANAFLEX [Concomitant]
  4. DANTRIUM [Concomitant]
  5. NEXIUM [Concomitant]
  6. REMERON [Concomitant]
  7. WELLBUTRIN XL [Concomitant]

REACTIONS (10)
  - ASTHENIA [None]
  - CONDITION AGGRAVATED [None]
  - DIZZINESS [None]
  - DYSPHEMIA [None]
  - FACIAL BONES FRACTURE [None]
  - FALL [None]
  - FATIGUE [None]
  - HYPOTENSION [None]
  - OEDEMA PERIPHERAL [None]
  - SPEECH DISORDER [None]
